FAERS Safety Report 6024719-4 (Version None)
Quarter: 2008Q4

REPORT INFORMATION
  Report Type: 
  Country: None (occurrence: None)
  Receive Date: 20081230
  Receipt Date: 20081230
  Transmission Date: 20090506
  Serious: Yes (Disabling, Other)
  Sender: FDA-Public Use
  Company Number: None

PATIENT

DRUGS (4)
  1. PROVENTIL-HFA [Suspect]
     Indication: DYSPNOEA
     Dosage: 2 PUFFS AS NEEDED INHAL
     Route: 055
     Dates: start: 20040101, end: 20040301
  2. PROVENTIL-HFA [Suspect]
     Indication: WHEEZING
     Dosage: 2 PUFFS AS NEEDED INHAL
     Route: 055
     Dates: start: 20040101, end: 20040301
  3. PROAIR HFA [Suspect]
     Indication: DYSPNOEA
     Dosage: 2 PUFFS AS NEEDED INHAL
     Route: 055
     Dates: start: 20081201, end: 20081229
  4. PROAIR HFA [Suspect]
     Indication: WHEEZING
     Dosage: 2 PUFFS AS NEEDED INHAL
     Route: 055
     Dates: start: 20081201, end: 20081229

REACTIONS (2)
  - DRUG INEFFECTIVE [None]
  - PRODUCT QUALITY ISSUE [None]
